FAERS Safety Report 8965310 (Version 2)
Quarter: 2013Q1

REPORT INFORMATION
  Report Type: Spontaneous
  Country: US (occurrence: US)
  Receive Date: 20121213
  Receipt Date: 20130205
  Transmission Date: 20140127
  Serious: Yes (Other)
  Sender: FDA-Public Use
  Company Number: US-BAYER-2012-127941

PATIENT
  Sex: Female

DRUGS (5)
  1. AVELOX [Suspect]
     Indication: PRODUCT USED FOR UNKNOWN INDICATION
     Dosage: 400 MG, UNK
     Route: 048
  2. LOESTRIN 1.5/30 [Concomitant]
     Dosage: 1.5/30 QD
     Route: 048
     Dates: start: 20100129
  3. DEXILANT [Concomitant]
     Dosage: 40 MG, QD
     Route: 048
     Dates: start: 20101024
  4. SYNTHROID [Concomitant]
     Dosage: 125 MCG
     Route: 048
     Dates: start: 20120429
  5. PROPRANOLOL [Concomitant]
     Dosage: 20 MCG
     Route: 048
     Dates: start: 20121009

REACTIONS (4)
  - Hypotension [Recovered/Resolved]
  - Rash [None]
  - Swelling face [Recovered/Resolved]
  - Pharyngeal oedema [Recovered/Resolved]
